FAERS Safety Report 4673246-5 (Version None)
Quarter: 2005Q2

REPORT INFORMATION
  Report Type: 
  Country: None (occurrence: None)
  Receive Date: 20050525
  Receipt Date: 20050518
  Transmission Date: 20051028
  Serious: Yes (Other)
  Sender: FDA-Public Use
  Company Number: 200511660FR

PATIENT
  Age: 34 Year
  Sex: Female

DRUGS (2)
  1. BIRODOGYL [Suspect]
     Indication: GINGIVITIS
     Route: 048
     Dates: start: 20050512, end: 20050513
  2. SURGAM [Concomitant]
     Indication: GINGIVITIS
     Route: 048
     Dates: start: 20050512, end: 20050513

REACTIONS (7)
  - ANAPHYLACTOID REACTION [None]
  - ANGIONEUROTIC OEDEMA [None]
  - CONFUSIONAL STATE [None]
  - COORDINATION ABNORMAL [None]
  - MALAISE [None]
  - RASH [None]
  - TACHYCARDIA [None]
